FAERS Safety Report 19873751 (Version 2)
Quarter: 2022Q3

REPORT INFORMATION
  Report Type: Spontaneous
  Country: US (occurrence: US)
  Receive Date: 20210922
  Receipt Date: 20220912
  Transmission Date: 20221027
  Serious: Yes (Other)
  Sender: FDA-Public Use
  Company Number: US-PFIZER INC-2019262556

PATIENT
  Age: 52 Year
  Sex: Female

DRUGS (1)
  1. RAPAMUNE [Suspect]
     Active Substance: SIROLIMUS
     Indication: Lymphangioleiomyomatosis
     Dosage: 2 DF DAILY (0.5MG TAB, 2 TABS DAILY)
     Route: 048

REACTIONS (2)
  - Lung disorder [Unknown]
  - Chest pain [Unknown]
